FAERS Safety Report 13819034 (Version 1)
Quarter: 2017Q3

REPORT INFORMATION
  Report Type: Spontaneous
  Country: US (occurrence: US)
  Receive Date: 20170731
  Receipt Date: 20170731
  Transmission Date: 20171127
  Serious: Yes (Death)
  Sender: FDA-Public Use
  Company Number: None

PATIENT
  Age: 74 Year
  Sex: Female
  Weight: 60 kg

DRUGS (20)
  1. TYLENOL [Suspect]
     Active Substance: ACETAMINOPHEN
  2. ZYRTEC [Concomitant]
     Active Substance: CETIRIZINE HYDROCHLORIDE
  3. POLYETHYLENE GLYCOL (GLYCOLAX) [Concomitant]
  4. PSYLLIUM (METAMUCIL) [Concomitant]
  5. SENNA-DOCUSATE (PERICOLACE) [Concomitant]
  6. PROTONIX [Concomitant]
     Active Substance: PANTOPRAZOLE SODIUM
  7. HYDROCODONE-ACETAMINOPHEN (NORCO) [Concomitant]
  8. FLUCONZAOLE (DIFLUCAN) [Concomitant]
  9. LACTULOSE. [Concomitant]
     Active Substance: LACTULOSE
  10. ALBUTEROL-IPRATROPIUM (DUO-NEB) [Concomitant]
  11. MELATONIN [Concomitant]
     Active Substance: MELATONIN
  12. APIXABAN [Suspect]
     Active Substance: APIXABAN
     Indication: PULMONARY EMBOLISM
     Route: 048
     Dates: start: 20170719, end: 20170728
  13. TRAZODONE (DESYREL) [Concomitant]
  14. FENTANYL (DURAGESIC) [Concomitant]
  15. HYDROCORTISONE (ANUSOL-HC) [Concomitant]
  16. DULCOLAX (BISACODYL) [Concomitant]
     Active Substance: BISACODYL
  17. ZOFRAN [Concomitant]
     Active Substance: ONDANSETRON HYDROCHLORIDE
  18. VENLAFAXINE (EFFEXOR-XR) [Concomitant]
  19. ATIVAN [Concomitant]
     Active Substance: LORAZEPAM
  20. METHYLNALTREXONE (RELISTOR) [Concomitant]

REACTIONS (1)
  - Disease progression [None]

NARRATIVE: CASE EVENT DATE: 20170730
